FAERS Safety Report 10017132 (Version 1)
Quarter: 2014Q1

REPORT INFORMATION
  Report Type: Report from Study
  Country: AR (occurrence: AR)
  Receive Date: 20140318
  Receipt Date: 20140318
  Transmission Date: 20141002
  Serious: Yes (Other)
  Sender: FDA-Public Use
  Company Number: AR-BRISTOL-MYERS SQUIBB COMPANY-20464418

PATIENT
  Age: 73 Year
  Sex: Female

DRUGS (1)
  1. ORENCIA [Suspect]
     Dosage: 1DF:250 UNITS NOS, 3 VIALS?DRUG INTRPTD ON 01FEB14
     Route: 042

REACTIONS (1)
  - Surgery [Unknown]
